FAERS Safety Report 6846071-4 (Version None)
Quarter: 2010Q3

REPORT INFORMATION
  Report Type: 
  Country: None (occurrence: None)
  Receive Date: 20100715
  Receipt Date: 20071101
  Transmission Date: 20110219
  Serious: No
  Sender: FDA-Public Use
  Company Number: US-PFIZER INC-2007074329

PATIENT
  Sex: Female
  Weight: 47.6 kg

DRUGS (6)
  1. CHANTIX [Suspect]
     Indication: SMOKING CESSATION THERAPY
     Route: 048
     Dates: start: 20070828
  2. DAYPRO [Suspect]
  3. FOSAMAX [Concomitant]
     Route: 048
  4. CALCIUM [Concomitant]
     Route: 048
  5. VITAMINS [Concomitant]
     Route: 048
  6. PENICILLIN NOS [Concomitant]

REACTIONS (3)
  - HEADACHE [None]
  - NAUSEA [None]
  - URTICARIA [None]
